FAERS Safety Report 17283346 (Version 1)
Quarter: 2020Q1

REPORT INFORMATION
  Report Type: Spontaneous
  Country: DK (occurrence: DK)
  Receive Date: 20200117
  Receipt Date: 20200117
  Transmission Date: 20200409
  Serious: Yes (Other)
  Sender: FDA-Public Use
  Company Number: DK-TEVA-2020-DK-1167994

PATIENT
  Age: 70 Year
  Sex: Male

DRUGS (1)
  1. ZOLEDRONIC ACID [Suspect]
     Active Substance: ZOLEDRONIC ACID
     Indication: PLASMA CELL MYELOMA
     Dosage: STRENGTH: 4 MG, DOSE: 4 MG EVERY 3.0-4. WEEK
     Route: 042
     Dates: start: 20181122, end: 20190417

REACTIONS (4)
  - Purulence [Not Recovered/Not Resolved]
  - Osteonecrosis of jaw [Recovering/Resolving]
  - Oral cavity fistula [Not Recovered/Not Resolved]
  - Sequestrectomy [Unknown]

NARRATIVE: CASE EVENT DATE: 201904
